FAERS Safety Report 8976460 (Version 1)
Quarter: 2012Q4

REPORT INFORMATION
  Report Type: 
  Country: DE (occurrence: DE)
  Receive Date: 20121220
  Receipt Date: 20121220
  Transmission Date: 20130627
  Serious: Yes (Life-Threatening, Hospitalization)
  Sender: FDA-Public Use
  Company Number: PHHO2012DE017960

PATIENT
  Age: 71 Year
  Sex: Male
  Weight: 89 kg

DRUGS (8)
  1. TAVEGIL [Suspect]
     Indication: PRODUCT USED FOR UNKNOWN INDICATION
     Dosage: 2 mg, daily
     Dates: start: 20110607, end: 20110607
  2. PARACETAMOL [Concomitant]
     Dosage: 1000 mg, UNK
     Dates: start: 20110607, end: 20110607
  3. ASPIRIN [Concomitant]
     Dosage: 100 mg, UNK
  4. SIMVASTATIN [Concomitant]
     Dosage: 20 mg, UNK
  5. PREDNISOLON [Concomitant]
     Dosage: 100 mg, UNK
     Dates: start: 20110607, end: 20110607
  6. DUTASTERIDE [Concomitant]
     Dates: start: 201010
  7. RITUXIMAB [Concomitant]
  8. PREDNISONE [Concomitant]

REACTIONS (1)
  - Anaphylactic reaction [Recovered/Resolved]
